FAERS Safety Report 5134064-7 (Version None)
Quarter: 2006Q4

REPORT INFORMATION
  Report Type: 
  Country: None (occurrence: None)
  Receive Date: 20061019
  Receipt Date: 20061006
  Transmission Date: 20070319
  Serious: Yes (Other)
  Sender: FDA-Public Use
  Company Number: 2006115337

PATIENT
  Age: 86 Year
  Sex: Male
  Weight: 43 kg

DRUGS (6)
  1. SULPERAZON (SULBACTAM, CEFOPERAZONE) [Suspect]
     Indication: BILIARY TRACT INFECTION
     Dosage: 3 GRAM (1.5 GRAM, 2 IN 1 D), INTRAVENOUS
     Route: 042
     Dates: start: 20060913, end: 20060918
  2. PHENOBARBITAL TAB [Suspect]
     Indication: CONVULSION
     Dosage: 100 MG (100 MG, 1 IN 1 D), INTRAMUSCULAR
     Route: 030
     Dates: start: 20060913, end: 20060919
  3. MINOCYCLINE HCL [Suspect]
     Indication: BILIARY TRACT INFECTION
     Dosage: 200 MG (100 MG, 2 IN 1 D), INTRAVENOUS
     Route: 042
     Dates: start: 20060915, end: 20060919
  4. FAMOTIDINE [Concomitant]
  5. FOIPAN (CAMOSTAT MESILATE) [Concomitant]
  6. FOY (GABEXATE MESILATE) [Concomitant]

REACTIONS (10)
  - ANAEMIA [None]
  - CARDIO-RESPIRATORY ARREST [None]
  - CEREBRAL INFARCTION [None]
  - CONVULSION [None]
  - DISSEMINATED INTRAVASCULAR COAGULATION [None]
  - EOSINOPHIL COUNT INCREASED [None]
  - HEMIPLEGIA [None]
  - NEUTROPENIA [None]
  - PLATELET COUNT DECREASED [None]
  - WHITE BLOOD CELL COUNT DECREASED [None]
